FAERS Safety Report 21283533 (Version 2)
Quarter: 2022Q3

REPORT INFORMATION
  Report Type: Spontaneous
  Country: DE (occurrence: DE)
  Receive Date: 20220901
  Receipt Date: 20220907
  Transmission Date: 20221027
  Serious: Yes (Death, Hospitalization, Other)
  Sender: FDA-Public Use
  Company Number: DE-GILEAD-2022-0595912

PATIENT
  Age: 71 Year
  Sex: Male
  Weight: 53 kg

DRUGS (16)
  1. TECARTUS [Suspect]
     Active Substance: BREXUCABTAGENE AUTOLEUCEL
     Indication: Product used for unknown indication
     Dosage: UNK
     Route: 065
     Dates: start: 20211005
  2. TECARTUS [Suspect]
     Active Substance: BREXUCABTAGENE AUTOLEUCEL
     Dosage: UNK
     Route: 065
     Dates: start: 20220301
  3. PLATELETS [Concomitant]
     Active Substance: HUMAN PLATELET, ALLOGENIC
  4. TRANEXAMIC ACID [Concomitant]
     Active Substance: TRANEXAMIC ACID
  5. IMMUNOGLOBULINS [Concomitant]
  6. PIPERACILLIN AND TAZOBACTAM [Concomitant]
     Active Substance: PIPERACILLIN SODIUM\TAZOBACTAM SODIUM
  7. PANTOPRAZOLE [Concomitant]
     Active Substance: PANTOPRAZOLE
     Dosage: 40 MG
  8. BISOPROLOL [Concomitant]
     Active Substance: BISOPROLOL
     Dosage: 2.5 MG
  9. POTASSIUM CHLORIDE [Concomitant]
     Active Substance: POTASSIUM CHLORIDE
  10. XUSAL [Concomitant]
     Active Substance: LEVOCETIRIZINE DIHYDROCHLORIDE
  11. AMPHOTERICIN B [Concomitant]
     Active Substance: AMPHOTERICIN B
  12. ACYCLOVIR [Concomitant]
     Active Substance: ACYCLOVIR
     Dosage: 400 MG 2 TABLETS 5X PER DAY
  13. COTRIM [Concomitant]
     Active Substance: SULFAMETHOXAZOLE\TRIMETHOPRIM
     Dosage: 480 MG 1-0-0 (MONDAYS, WEDNESDAYS, FRIDAYS ONLY)
  14. ENTECAVIR [Concomitant]
     Active Substance: ENTECAVIR
     Dosage: 0.5 MG
  15. CIPROFLOXACIN [Concomitant]
     Active Substance: CIPROFLOXACIN
     Dosage: 500 MG
  16. POSACONAZOLE [Concomitant]
     Active Substance: POSACONAZOLE
     Dosage: 100 MG

REACTIONS (6)
  - Death [Fatal]
  - Circulatory collapse [Unknown]
  - Subdural haematoma [Unknown]
  - Pyrexia [Unknown]
  - Neutropenia [Unknown]
  - Skin disorder [Unknown]

NARRATIVE: CASE EVENT DATE: 20220514
